FAERS Safety Report 9897930 (Version 2)
Quarter: 2014Q1

REPORT INFORMATION
  Report Type: Spontaneous
  Country: US (occurrence: US)
  Receive Date: 20140214
  Receipt Date: 20140226
  Transmission Date: 20141002
  Serious: No
  Sender: FDA-Public Use
  Company Number: US-PFIZER INC-2014043059

PATIENT
  Age: 70 Year
  Sex: Male
  Weight: 49.89 kg

DRUGS (2)
  1. GABAPENTIN [Suspect]
     Indication: LOCAL SWELLING
     Dosage: 300 MG, 3X/DAY
     Dates: start: 201311, end: 201401
  2. GABAPENTIN [Suspect]
     Indication: BURNING SENSATION

REACTIONS (1)
  - Drug ineffective for unapproved indication [Unknown]
